FAERS Safety Report 18478638 (Version 1)
Quarter: 2020Q4

REPORT INFORMATION
  Report Type: Spontaneous
  Country: US (occurrence: US)
  Receive Date: 20201109
  Receipt Date: 20201109
  Transmission Date: 20210114
  Serious: Yes (Life-Threatening, Hospitalization, Other)
  Sender: FDA-Public Use
  Company Number: US-AUROBINDO-AUR-APL-2020-054533

PATIENT
  Age: 54 Year
  Sex: Male

DRUGS (1)
  1. AMLODIPINE [Suspect]
     Active Substance: AMLODIPINE BESYLATE
     Indication: PRODUCT USED FOR UNKNOWN INDICATION
     Dosage: 70 DOSAGE FORM
     Route: 065

REACTIONS (11)
  - Ischaemia [Recovered/Resolved]
  - Traumatic lung injury [Recovered/Resolved]
  - Hypotension [Recovered/Resolved]
  - Pancreatitis [Unknown]
  - Tachycardia [Recovered/Resolved]
  - Leukocytosis [Unknown]
  - Respiratory failure [Recovered/Resolved]
  - Acute respiratory failure [Recovered/Resolved]
  - Pulmonary oedema [Recovered/Resolved]
  - Organising pneumonia [Recovered/Resolved]
  - Intentional overdose [Recovering/Resolving]
